FAERS Safety Report 4381046-9 (Version None)
Quarter: 2004Q2

REPORT INFORMATION
  Report Type: 
  Country: None (occurrence: None)
  Receive Date: 20040601
  Receipt Date: 20040406
  Transmission Date: 20050107
  Serious: No
  Sender: FDA-Public Use
  Company Number: FABR-10532

PATIENT
  Age: 50 Year
  Sex: Male
  Weight: 77.9 kg

DRUGS (3)
  1. FABRAZYME [Suspect]
     Indication: FABRY'S DISEASE
     Dosage: 70 MG Q2WKS IV
     Route: 042
     Dates: start: 20030725
  2. BENADRYL [Concomitant]
  3. ACETAMINOPHEN [Concomitant]

REACTIONS (1)
  - RASH [None]
